FAERS Safety Report 15247625 (Version 7)
Quarter: 2019Q1

REPORT INFORMATION
  Report Type: Report from Study
  Country: US (occurrence: US)
  Receive Date: 20180807
  Receipt Date: 20190215
  Transmission Date: 20190417
  Serious: Yes (Other)
  Sender: FDA-Public Use
  Company Number: PHEH2018US032434

PATIENT
  Age: 63 Year
  Sex: Male
  Weight: 66.2 kg

DRUGS (2)
  1. COSENTYX [Suspect]
     Active Substance: SECUKINUMAB
     Indication: PSORIATIC ARTHROPATHY
     Dosage: 150 MG, QMO
     Route: 058
     Dates: start: 20180413
  2. COSENTYX [Suspect]
     Active Substance: SECUKINUMAB
     Indication: PSORIASIS
     Dosage: 300 MG (2 INJETIONS OF 150 MG), QMO
     Route: 058

REACTIONS (7)
  - Tooth infection [Unknown]
  - Ear infection [Recovered/Resolved]
  - Heart rate increased [Unknown]
  - Ear discomfort [Unknown]
  - Musculoskeletal pain [Unknown]
  - Myocardial infarction [Recovered/Resolved]
  - Anaemia [Unknown]

NARRATIVE: CASE EVENT DATE: 20181204
